FAERS Safety Report 16165529 (Version 3)
Quarter: 2020Q1

REPORT INFORMATION
  Report Type: Spontaneous
  Country: US (occurrence: US)
  Receive Date: 20190405
  Receipt Date: 20200310
  Transmission Date: 20200409
  Serious: Yes (Other)
  Sender: FDA-Public Use
  Company Number: US-ASTRAZENECA-2018SF65454

PATIENT
  Age: 25963 Day
  Sex: Female
  Weight: 83.9 kg

DRUGS (21)
  1. SINGULAIR [Concomitant]
     Active Substance: MONTELUKAST SODIUM
     Indication: ASTHMA
     Dates: start: 20100817
  2. NAPROXEN. [Concomitant]
     Active Substance: NAPROXEN
  3. AVELOX [Concomitant]
     Active Substance: MOXIFLOXACIN HYDROCHLORIDE
  4. FLUCONAZOLE. [Concomitant]
     Active Substance: FLUCONAZOLE
     Dates: start: 20100812
  5. ALBUTEROL. [Concomitant]
     Active Substance: ALBUTEROL
     Indication: ASTHMA
     Dates: start: 2009
  6. SYMBICORT [Concomitant]
     Active Substance: BUDESONIDE\FORMOTEROL FUMARATE DIHYDRATE
  7. DICYCLOMINE [Concomitant]
     Active Substance: DICYCLOMINE HYDROCHLORIDE
  8. NEXIUM [Suspect]
     Active Substance: ESOMEPRAZOLE MAGNESIUM
     Indication: LARGE INTESTINAL POLYPECTOMY
     Dosage: UNKNOWN
     Route: 048
     Dates: start: 20130309
  9. NEXIUM [Suspect]
     Active Substance: ESOMEPRAZOLE MAGNESIUM
     Indication: LARGE INTESTINAL POLYPECTOMY
     Dosage: 40.0MG UNKNOWN
     Route: 048
     Dates: start: 20160411
  10. NEXIUM [Suspect]
     Active Substance: ESOMEPRAZOLE MAGNESIUM
     Indication: LARGE INTESTINAL POLYPECTOMY
     Dosage: 40.0MG UNKNOWN
     Route: 048
     Dates: start: 20141203
  11. AZITHROMYCIN ANHYDROUS. [Concomitant]
     Active Substance: AZITHROMYCIN ANHYDROUS
     Dates: start: 20100812
  12. NEXIUM [Suspect]
     Active Substance: ESOMEPRAZOLE MAGNESIUM
     Indication: LARGE INTESTINAL POLYPECTOMY
     Dosage: UNKNOWN
     Route: 048
     Dates: end: 20160822
  13. SINGULAIR [Concomitant]
     Active Substance: MONTELUKAST SODIUM
     Indication: ASTHMA
     Dates: start: 2009
  14. GABAPENTIN. [Concomitant]
     Active Substance: GABAPENTIN
  15. NEXIUM [Suspect]
     Active Substance: ESOMEPRAZOLE MAGNESIUM
     Indication: LARGE INTESTINAL POLYPECTOMY
     Dosage: 20.0MG UNKNOWN
     Route: 048
     Dates: start: 2010, end: 2016
  16. NEXIUM [Suspect]
     Active Substance: ESOMEPRAZOLE MAGNESIUM
     Indication: LARGE INTESTINAL POLYPECTOMY
     Dosage: 40.0MG UNKNOWN
     Route: 048
     Dates: start: 20101007
  17. MELOXICAM. [Concomitant]
     Active Substance: MELOXICAM
  18. NITROFURANTOIN. [Concomitant]
     Active Substance: NITROFURANTOIN
  19. BENADRYL [Concomitant]
     Active Substance: DIPHENHYDRAMINE HYDROCHLORIDE
     Indication: SLEEP DISORDER
  20. ACZONE [Concomitant]
     Active Substance: DAPSONE
  21. FLUTICASONE. [Concomitant]
     Active Substance: FLUTICASONE
     Dates: start: 20110221

REACTIONS (3)
  - Renal failure [Unknown]
  - Rebound acid hypersecretion [Unknown]
  - Chronic kidney disease [Not Recovered/Not Resolved]

NARRATIVE: CASE EVENT DATE: 20151028
